FAERS Safety Report 17754618 (Version 2)
Quarter: 2020Q4

REPORT INFORMATION
  Report Type: Report from Study
  Country: US (occurrence: US)
  Receive Date: 20200506
  Receipt Date: 20201103
  Transmission Date: 20210113
  Serious: Yes (Other)
  Sender: FDA-Public Use
  Company Number: US-ROCHE-2594986

PATIENT
  Age: 60 Year
  Sex: Female
  Weight: 78.4 kg

DRUGS (13)
  1. MAGNESIUM OXIDE. [Concomitant]
     Active Substance: MAGNESIUM OXIDE
  2. PREDNISONE. [Concomitant]
     Active Substance: PREDNISONE
  3. OBINUTUZUMAB. [Suspect]
     Active Substance: OBINUTUZUMAB
     Indication: GRAFT VERSUS HOST DISEASE
     Dosage: POST HSCT ONGOING : YES
     Route: 042
     Dates: start: 20200130
  4. CHOLECALCIFEROL [Concomitant]
     Active Substance: CHOLECALCIFEROL
  5. FOLIC ACID. [Concomitant]
     Active Substance: FOLIC ACID
  6. PANTOPRAZOLE [Concomitant]
     Active Substance: PANTOPRAZOLE
  7. FLUCONAZOLE. [Concomitant]
     Active Substance: FLUCONAZOLE
  8. METRONIDAZOLE. [Concomitant]
     Active Substance: METRONIDAZOLE
  9. ACYCLOVIR. [Concomitant]
     Active Substance: ACYCLOVIR
  10. TRIMETHOPRIM SULFAMETHOXAZOLE [Concomitant]
     Active Substance: SULFAMETHOXAZOLE\TRIMETHOPRIM
  11. TACROLIMUS. [Concomitant]
     Active Substance: TACROLIMUS
  12. CLOBETASOL [Concomitant]
     Active Substance: CLOBETASOL
  13. ONDANSETRON [Concomitant]
     Active Substance: ONDANSETRON

REACTIONS (1)
  - Papilloedema [Unknown]

NARRATIVE: CASE EVENT DATE: 20200429
